FAERS Safety Report 19949955 (Version 3)
Quarter: 2021Q4

REPORT INFORMATION
  Report Type: Spontaneous
  Country: US (occurrence: US)
  Receive Date: 20211013
  Receipt Date: 20211115
  Transmission Date: 20220303
  Serious: No
  Sender: FDA-Public Use
  Company Number: US-SA-SAC20211011000980

PATIENT
  Age: 45 Year
  Sex: Female

DRUGS (5)
  1. DUPIXENT [Suspect]
     Active Substance: DUPILUMAB
     Indication: Dermatitis
     Dosage: UNK, 1X
  2. DUPIXENT [Suspect]
     Active Substance: DUPILUMAB
     Indication: Dermatitis atopic
     Dosage: 300 MG, QOW
     Route: 058
     Dates: start: 20210926
  3. DUPIXENT [Suspect]
     Active Substance: DUPILUMAB
     Indication: Dermatitis atopic
  4. VITAMIN D NOS [Concomitant]
     Active Substance: VITAMIN D NOS
  5. PRENATAL 19 [Concomitant]
     Active Substance: .ALPHA.-TOCOPHEROL ACETATE, DL-\.BETA.-CAROTENE\ASCORBIC ACID\CALCIUM CARBONATE\CALCIUM PANTOTHENATE

REACTIONS (4)
  - Sleep disorder [Unknown]
  - Dry eye [Not Recovered/Not Resolved]
  - Dermatitis atopic [Unknown]
  - Product use in unapproved indication [Unknown]

NARRATIVE: CASE EVENT DATE: 20211001
